FAERS Safety Report 20131222 (Version 4)
Quarter: 2022Q2

REPORT INFORMATION
  Report Type: Report from Study
  Country: AT (occurrence: AT)
  Receive Date: 20211130
  Receipt Date: 20220519
  Transmission Date: 20220720
  Serious: Yes (Other)
  Sender: FDA-Public Use
  Company Number: AT-ROCHE-2925833

PATIENT
  Age: 40 Year
  Sex: Female

DRUGS (79)
  1. TRASTUZUMAB [Suspect]
     Active Substance: TRASTUZUMAB
     Indication: HER2 positive breast cancer
     Dosage: 8 MILLIGRAM/KILOGRAM, Q3W
     Route: 041
     Dates: start: 20161020, end: 20161020
  2. TRASTUZUMAB [Suspect]
     Active Substance: TRASTUZUMAB
     Dosage: 8 MILLIGRAM/KILOGRAM, Q3W
     Route: 041
     Dates: start: 20170112, end: 20170112
  3. TRASTUZUMAB [Suspect]
     Active Substance: TRASTUZUMAB
     Dosage: 6 MILLIGRAM/KILOGRAM, Q3W
     Route: 041
     Dates: start: 20170227, end: 20180108
  4. TRASTUZUMAB [Suspect]
     Active Substance: TRASTUZUMAB
     Dosage: 6 MILLIGRAM/KILOGRAM, Q3W
     Route: 041
     Dates: start: 20190906, end: 20210409
  5. DOCETAXEL [Suspect]
     Active Substance: DOCETAXEL
     Indication: HER2 positive breast cancer
     Dosage: 75 MILLIGRAM/SQ. METER, Q3W
     Route: 042
     Dates: start: 20161020, end: 20161020
  6. DOCETAXEL [Suspect]
     Active Substance: DOCETAXEL
     Dosage: 75 MILLIGRAM/SQ. METER, Q3W
     Route: 042
     Dates: start: 20161111, end: 20161111
  7. DOCETAXEL [Suspect]
     Active Substance: DOCETAXEL
     Dosage: 100 MILLIGRAM/SQ. METER, Q3W
     Route: 042
     Dates: start: 20161201, end: 20161222
  8. DOCETAXEL [Suspect]
     Active Substance: DOCETAXEL
     Dosage: 100 MILLIGRAM/SQ. METER, Q3W
     Route: 042
     Dates: start: 20170112, end: 20170202
  9. EPIRUBICIN [Suspect]
     Active Substance: EPIRUBICIN
     Indication: HER2 positive breast cancer
     Dosage: 100 MILLIGRAM/SQ. METER
     Route: 042
     Dates: start: 20161005, end: 20161005
  10. TUCATINIB [Suspect]
     Active Substance: TUCATINIB
     Indication: Breast cancer
     Dosage: 300 MILLIGRAM, BID
     Route: 048
     Dates: start: 20210430
  11. TUCATINIB [Suspect]
     Active Substance: TUCATINIB
     Indication: HER2 positive breast cancer
  12. ADO-TRASTUZUMAB EMTANSINE [Suspect]
     Active Substance: ADO-TRASTUZUMAB EMTANSINE
     Indication: Breast cancer
     Dosage: 3.6 MILLIGRAM/KILOGRAM, Q3W
     Route: 042
     Dates: start: 20180205, end: 20190816
  13. ADO-TRASTUZUMAB EMTANSINE [Suspect]
     Active Substance: ADO-TRASTUZUMAB EMTANSINE
     Indication: HER2 positive breast cancer
  14. CAPECITABINE [Suspect]
     Active Substance: CAPECITABINE
     Indication: HER2 positive breast cancer
     Dosage: 1500 MILLIGRAM (DAY 1 - DAY 14, TWICE DAILY)
     Route: 065
     Dates: start: 20210430, end: 20210903
  15. CAPECITABINE [Suspect]
     Active Substance: CAPECITABINE
     Dosage: 1000 MILLIGRAM, BID (DAY 1 - DAY 14, TWICE DAILY )
     Route: 065
     Dates: start: 20210904
  16. CYCLOPHOSPHAMIDE [Suspect]
     Active Substance: CYCLOPHOSPHAMIDE
     Indication: Breast cancer
     Dosage: 500 MILLIGRAM/SQ. METER
     Route: 042
     Dates: start: 20161005, end: 20161005
  17. CYCLOPHOSPHAMIDE [Suspect]
     Active Substance: CYCLOPHOSPHAMIDE
     Indication: HER2 positive breast cancer
  18. PERTUZUMAB [Suspect]
     Active Substance: PERTUZUMAB
     Indication: Breast cancer
     Dosage: 840 MILLIGRAM, Q3W
     Route: 042
     Dates: start: 20161020, end: 20161020
  19. PERTUZUMAB [Suspect]
     Active Substance: PERTUZUMAB
     Indication: HER2 positive breast cancer
     Dosage: 840 MILLIGRAM, Q3W
     Route: 042
     Dates: start: 20170112, end: 20170112
  20. PERTUZUMAB [Suspect]
     Active Substance: PERTUZUMAB
     Dosage: 420 MILLIGRAM, Q3W
     Route: 042
     Dates: start: 20170227, end: 20180108
  21. PERTUZUMAB [Suspect]
     Active Substance: PERTUZUMAB
     Dosage: 420 MILLIGRAM, Q3W
     Route: 042
     Dates: start: 20190906, end: 20210409
  22. ONDANSETRON HYDROCHLORIDE [Concomitant]
     Active Substance: ONDANSETRON HYDROCHLORIDE
     Indication: Nausea
     Dosage: UNK
     Dates: start: 20181105
  23. ONDANSETRON HYDROCHLORIDE [Concomitant]
     Active Substance: ONDANSETRON HYDROCHLORIDE
     Dosage: 8 MILLIGRAM, (ONGOING = CHECKED)
     Route: 048
     Dates: start: 20181105
  24. HYDROMORPHONE HYDROCHLORIDE [Concomitant]
     Active Substance: HYDROMORPHONE HYDROCHLORIDE
     Indication: Pain prophylaxis
     Dosage: 2 MILLIGRAM
     Route: 048
     Dates: start: 20190816, end: 20210326
  25. HYDROMORPHONE HYDROCHLORIDE [Concomitant]
     Active Substance: HYDROMORPHONE HYDROCHLORIDE
     Dosage: UNK, (ONGOING = CHECKED)
     Dates: start: 20210309
  26. HYDROMORPHONE HYDROCHLORIDE [Concomitant]
     Active Substance: HYDROMORPHONE HYDROCHLORIDE
     Dosage: 2 MILLIGRAM, BID
     Route: 048
     Dates: start: 20210326, end: 20210409
  27. HYDROMORPHONE HYDROCHLORIDE [Concomitant]
     Active Substance: HYDROMORPHONE HYDROCHLORIDE
     Dosage: 1.3 MILLIGRAM
     Dates: start: 201706
  28. HYDROMORPHONE HYDROCHLORIDE [Concomitant]
     Active Substance: HYDROMORPHONE HYDROCHLORIDE
     Dosage: 4 MILLIGRAM, BID
     Route: 048
     Dates: start: 20210410
  29. METOCLOPRAMIDE [Concomitant]
     Active Substance: METOCLOPRAMIDE
     Indication: Prophylaxis of nausea and vomiting
     Dosage: UNK
     Dates: start: 20180205
  30. METOCLOPRAMIDE [Concomitant]
     Active Substance: METOCLOPRAMIDE
     Dosage: 10 MILLIGRAM, Q3W, (ONGOING = CHECKED)
     Route: 042
     Dates: start: 20180205, end: 20190816
  31. VITAMINS WITH MINERALS [Concomitant]
     Active Substance: MINERALS\VITAMINS
     Indication: Osteoporosis prophylaxis
     Dosage: UNK
     Dates: start: 20161112
  32. VITAMINS WITH MINERALS [Concomitant]
     Active Substance: MINERALS\VITAMINS
     Dosage: 1 DOSAGE FORM, BID, (ONGOING = CHECKED)
     Route: 048
     Dates: start: 20161112
  33. XGEVA [Concomitant]
     Active Substance: DENOSUMAB
     Indication: Prophylaxis
     Dosage: UNK
     Dates: start: 20161201
  34. XGEVA [Concomitant]
     Active Substance: DENOSUMAB
     Dosage: 120 MILLIGRAM, MONTHLY, (ONGOING = CHECKED)
     Route: 058
     Dates: start: 20161201
  35. DEXIBUPROFEN [Concomitant]
     Active Substance: DEXIBUPROFEN
     Indication: Pain prophylaxis
     Dosage: UNK
     Dates: start: 20210312
  36. DEXIBUPROFEN [Concomitant]
     Active Substance: DEXIBUPROFEN
     Dosage: 400 MILLIGRAM, Q3W, (ONGOING = CHECKED)
     Route: 048
     Dates: start: 20210312
  37. SERTRALINE [Concomitant]
     Active Substance: SERTRALINE HYDROCHLORIDE
     Indication: Depression
     Dosage: UNK
     Dates: start: 20171016
  38. SERTRALINE [Concomitant]
     Active Substance: SERTRALINE HYDROCHLORIDE
     Dosage: 25 MILLIGRAM, QD, (ONGOING = CHECKED)
     Route: 048
     Dates: start: 20171016
  39. ENTEROBENE [Concomitant]
     Indication: Diarrhoea
     Dosage: UNK
     Dates: start: 20171127
  40. ENTEROBENE [Concomitant]
     Dosage: 2 MILLIGRAM, (ONGOING = CHECKED)
     Route: 048
     Dates: start: 20171127
  41. BISOPROLOL FUMARATE [Concomitant]
     Active Substance: BISOPROLOL FUMARATE
     Indication: Prophylaxis
     Dosage: UNK
     Dates: start: 20170227
  42. BISOPROLOL FUMARATE [Concomitant]
     Active Substance: BISOPROLOL FUMARATE
     Dosage: 2.5 MILLIGRAM, BID, (ONGOING = CHECKED)
     Route: 048
     Dates: start: 20170227
  43. SUCRALAN [Concomitant]
     Indication: Prophylaxis
     Dosage: UNK, (ONGOING = NOT CHECKED)
     Dates: start: 20161215
  44. SUCRALAN [Concomitant]
     Dosage: 5 MILLILITER, (ONGOING = NOT CHECKED)
     Route: 048
     Dates: start: 201612, end: 20161212
  45. RAMIPRIL [Concomitant]
     Active Substance: RAMIPRIL
     Dosage: 2.5 MILLIGRAM, BID
     Route: 048
     Dates: start: 20161112, end: 20161221
  46. RAMIPRIL [Concomitant]
     Active Substance: RAMIPRIL
     Dosage: UNK
     Dates: start: 20170227
  47. RAMIPRIL [Concomitant]
     Active Substance: RAMIPRIL
     Dosage: 15 MILLIGRAM, QD, (ONGOING = CHECKED)
     Route: 048
     Dates: start: 20170227
  48. RAMIPRIL [Concomitant]
     Active Substance: RAMIPRIL
     Dosage: 5 MILLIGRAM, BID
     Route: 048
     Dates: start: 20161222, end: 20170226
  49. ZOFRAN [Concomitant]
     Active Substance: ONDANSETRON HYDROCHLORIDE
     Indication: Prophylaxis of nausea and vomiting
     Dosage: 8 MILLIGRAM
     Route: 048
     Dates: start: 20161123, end: 20170204
  50. CLOBAZAM [Concomitant]
     Active Substance: CLOBAZAM
     Dosage: 5 TABLET, BID, START 01-FEB-2022
     Route: 048
  51. IMODIUM [Concomitant]
     Active Substance: LOPERAMIDE HYDROCHLORIDE
     Dosage: 2 MILLIGRAM
     Route: 048
     Dates: start: 20171106, end: 20171127
  52. LEVETIRACETAM [Concomitant]
     Active Substance: LEVETIRACETAM
     Dosage: 750 MILLIGRAM, BID, START 01-FEB-2022
     Route: 048
  53. FENTANYL [Concomitant]
     Active Substance: FENTANYL
     Indication: Pain prophylaxis
     Dosage: 25 MICROGRAM, Q3D
     Route: 062
     Dates: start: 201706
  54. ALPRAZOLAM [Concomitant]
     Active Substance: ALPRAZOLAM
     Dosage: 0.5 MILLIGRAM
     Route: 048
     Dates: end: 20161117
  55. HALDOL [Concomitant]
     Active Substance: HALOPERIDOL
     Indication: Prophylaxis of nausea and vomiting
     Dosage: 4 DROP, BID, (DROP (1/12 MILLILITRE)
     Route: 048
     Dates: end: 201702
  56. DEXAMETHASONE [Concomitant]
     Active Substance: DEXAMETHASONE
     Indication: Prophylaxis
     Dosage: 8 MILLIGRAM, BID
     Route: 048
     Dates: start: 20161202, end: 20161203
  57. DEXAMETHASONE [Concomitant]
     Active Substance: DEXAMETHASONE
     Dosage: 8 MILLIGRAM, QD
     Route: 048
     Dates: start: 20180117, end: 20180122
  58. PANTOPRAZOLE SODIUM [Concomitant]
     Active Substance: PANTOPRAZOLE SODIUM
     Dosage: 40 MILLIGRAM, BID
     Route: 048
     Dates: start: 20161018, end: 20161030
  59. PANTOPRAZOLE SODIUM [Concomitant]
     Active Substance: PANTOPRAZOLE SODIUM
     Dosage: 40 MILLIGRAM, QD
     Route: 048
     Dates: start: 20161031, end: 20161123
  60. PANTOPRAZOLE SODIUM [Concomitant]
     Active Substance: PANTOPRAZOLE SODIUM
     Dosage: 40 MILLIGRAM, BID
     Route: 042
     Dates: start: 20161010, end: 20161018
  61. ARANESP [Concomitant]
     Active Substance: DARBEPOETIN ALFA
     Indication: Anaemia prophylaxis
     Dosage: 150 MICROGRAM, MONTHLY
     Route: 058
     Dates: start: 20161201, end: 201701
  62. LIPEGFILGRASTIM [Concomitant]
     Active Substance: LIPEGFILGRASTIM
     Indication: Prophylaxis
     Dosage: 6 MILLIGRAM, Q3W
     Route: 058
     Dates: start: 20170113, end: 20170203
  63. Paspertin [Concomitant]
     Indication: Nausea
     Dosage: 3 AMPULE
     Route: 042
     Dates: start: 20161113
  64. FILGRASTIM [Concomitant]
     Active Substance: FILGRASTIM
     Dosage: 48 INTERNATIONAL UNIT, QW
     Route: 058
     Dates: start: 20161208, end: 20161211
  65. MOVICOL [Concomitant]
     Active Substance: POLYETHYLENE GLYCOL 3350\POTASSIUM CHLORIDE\SODIUM BICARBONATE\SODIUM CHLORIDE
     Indication: Constipation prophylaxis
     Dosage: UNK
     Route: 048
     Dates: end: 201706
  66. GLANDOMED [Concomitant]
     Dosage: UNK
     Route: 061
     Dates: start: 20161208, end: 20161222
  67. SERTRALINE HYDROCHLORIDE [Concomitant]
     Active Substance: SERTRALINE HYDROCHLORIDE
     Dosage: 50 MILLIGRAM, QD
     Route: 048
     Dates: end: 201710
  68. CEOLAT [Concomitant]
     Indication: Prophylaxis of nausea and vomiting
     Dosage: 10 MILLILITER
     Route: 048
     Dates: start: 20161112, end: 201702
  69. KCL [Concomitant]
     Active Substance: POTASSIUM CHLORIDE
     Indication: Prophylaxis
     Dosage: 1200 MILLIGRAM, BID
     Route: 048
     Dates: start: 20161117, end: 201702
  70. XARELTO [Concomitant]
     Active Substance: RIVAROXABAN
     Indication: Thrombosis prophylaxis
     Dosage: 10 MILLIGRAM, QD
     Route: 048
     Dates: start: 20161026, end: 201612
  71. OPTIFIBRE [Concomitant]
     Indication: Prophylaxis
     Dosage: UNK
     Route: 048
     Dates: start: 20161102, end: 201611
  72. PERFALGAN [Concomitant]
     Active Substance: ACETAMINOPHEN
     Dosage: 1 GRAM, QD
     Route: 042
     Dates: start: 20161208, end: 20161212
  73. DEXAMETHASONE [Concomitant]
     Active Substance: DEXAMETHASONE
     Dosage: 8 MILLIGRAM, QD
     Route: 048
     Dates: start: 20180817, end: 20180831
  74. HALCION [Concomitant]
     Active Substance: TRIAZOLAM
     Indication: Sleep disorder
     Dosage: 0.25 MILLIGRAM, QD
     Route: 048
     Dates: start: 2016, end: 201702
  75. AMOXICILLIN\CLAVULANATE POTASSIUM [Concomitant]
     Active Substance: AMOXICILLIN\CLAVULANATE POTASSIUM
     Dosage: 1 GRAM, BID
     Route: 048
     Dates: start: 20161212, end: 20161216
  76. LASIX [Concomitant]
     Active Substance: FUROSEMIDE
     Indication: Prophylaxis
     Dosage: 30 MILLIGRAM, QD
     Route: 048
     Dates: start: 20161114, end: 201611
  77. LASIX [Concomitant]
     Active Substance: FUROSEMIDE
     Indication: Prophylaxis
     Dosage: 40 MILLIGRAM, QD
     Route: 042
     Dates: start: 20161112, end: 20161114
  78. TAZOBACTAM [Concomitant]
     Active Substance: TAZOBACTAM
     Dosage: 4.5 GRAM, QD
     Route: 042
     Dates: start: 20161208, end: 20161212
  79. BISOPROLOL FUMARATE [Concomitant]
     Active Substance: BISOPROLOL FUMARATE
     Dosage: 1.25 MILLIGRAM, QD
     Route: 048
     Dates: start: 20161117, end: 20170226

REACTIONS (1)
  - Hemianopia [Recovered/Resolved]

NARRATIVE: CASE EVENT DATE: 20210924
